FAERS Safety Report 7237967-2 (Version None)
Quarter: 2011Q1

REPORT INFORMATION
  Report Type: 
  Country: None (occurrence: None)
  Receive Date: 20110121
  Receipt Date: 20110113
  Transmission Date: 20110831
  Serious: Yes (Other)
  Sender: FDA-Public Use
  Company Number: CHPA2010JP19457

PATIENT
  Age: 48 Year
  Sex: Male

DRUGS (4)
  1. ALLEGRA [Suspect]
     Indication: DRUG ERUPTION
     Dosage: 120 MG, QD
     Route: 048
     Dates: start: 20090619, end: 20090622
  2. TAVEGYL [Suspect]
     Indication: DRUG ERUPTION
     Dosage: 2 MG, QD
     Route: 048
     Dates: start: 20090619, end: 20090622
  3. GASPORT [Suspect]
     Indication: DRUG ERUPTION
     Dosage: 40 MG, QD
     Route: 048
     Dates: start: 20090619, end: 20090622
  4. PREDONINE [Suspect]
     Indication: DRUG ERUPTION
     Dosage: 30 MG, QD
     Route: 048
     Dates: start: 20090619, end: 20090622

REACTIONS (1)
  - LIVER DISORDER [None]
